FAERS Safety Report 18240302 (Version 4)
Quarter: 2020Q4

REPORT INFORMATION
  Report Type: Spontaneous
  Country: DE (occurrence: DE)
  Receive Date: 20200908
  Receipt Date: 20201123
  Transmission Date: 20210113
  Serious: Yes (Hospitalization, Other)
  Sender: FDA-Public Use
  Company Number: DE-AUROBINDO-AUR-APL-2020-046777

PATIENT
  Age: 86 Year
  Sex: Male
  Weight: 118 kg

DRUGS (6)
  1. BISOPROLOL [Suspect]
     Active Substance: BISOPROLOL
     Indication: HYPERTENSION
     Dosage: UNK
     Route: 048
     Dates: start: 20200507
  2. SPIRONOLACTONE. [Suspect]
     Active Substance: SPIRONOLACTONE
     Indication: HYPERTENSION
     Dosage: UNK
     Route: 048
     Dates: start: 20200507
  3. BISOPROLOL [Suspect]
     Active Substance: BISOPROLOL
     Dosage: UNK
  4. DUPILUMAB [Suspect]
     Active Substance: DUPILUMAB
     Indication: DERMATITIS ATOPIC
     Dosage: UNK UNK, 2 WEEK
     Route: 058
     Dates: start: 20200227
  5. DUPILUMAB [Suspect]
     Active Substance: DUPILUMAB
     Dosage: UNK
  6. SPIRONOLACTONE. [Suspect]
     Active Substance: SPIRONOLACTONE
     Dosage: UNK

REACTIONS (8)
  - Bradyarrhythmia [Recovered/Resolved]
  - Fall [Recovered/Resolved]
  - Urinary incontinence [Not Recovered/Not Resolved]
  - Gait disturbance [Recovered/Resolved]
  - Hyperkalaemia [Recovered/Resolved]
  - Spinal stenosis [Recovered/Resolved]
  - Pruritus [Not Recovered/Not Resolved]
  - Head injury [Recovered/Resolved]

NARRATIVE: CASE EVENT DATE: 20200313
